FAERS Safety Report 8183728-X (Version None)
Quarter: 2012Q1

REPORT INFORMATION
  Report Type: 
  Country: None (occurrence: None)
  Receive Date: 20120305
  Receipt Date: 20120223
  Transmission Date: 20120608
  Serious: Yes (Hospitalization, Other)
  Sender: FDA-Public Use
  Company Number: PHHY2012HU014802

PATIENT
  Sex: Male

DRUGS (10)
  1. FOSINOPRIL W/HYDROCHLOROTHIAZIDE [Concomitant]
     Dosage: 1 DF, QD
  2. SPIRIVA [Concomitant]
     Dosage: 1 DF, QD
  3. INDACATEROL [Suspect]
     Indication: CHRONIC OBSTRUCTIVE PULMONARY DISEASE
     Dosage: 150 UG, QD
     Dates: start: 20110105
  4. ASPIRIN [Concomitant]
     Dosage: 100 MG, QD
  5. METFOGAMMA [Concomitant]
     Dosage: 1 DF, TID
  6. BISOPROLOL FUMARATE [Concomitant]
     Dosage: 2.5 MG, QD
  7. DOXAZOSIN MESYLATE [Concomitant]
     Dosage: 4 MG, QD
  8. ROSUVASTATIN [Concomitant]
     Dosage: 20 MG, QD
  9. ALLOPURINOL [Concomitant]
     Dosage: 300 MG, QD
  10. SYNCUMAR [Concomitant]
     Dosage: 2.5 MG, QD

REACTIONS (5)
  - WEIGHT DECREASED [None]
  - PNEUMONIA [None]
  - BODY TEMPERATURE DECREASED [None]
  - COUGH [None]
  - ASTHENIA [None]
